FAERS Safety Report 5254485-1 (Version None)
Quarter: 2007Q1

REPORT INFORMATION
  Report Type: 
  Country: None (occurrence: None)
  Receive Date: 20070302
  Receipt Date: 20070222
  Transmission Date: 20070707
  Serious: Yes (Hospitalization, Other)
  Sender: FDA-Public Use
  Company Number: GB-PFIZER INC-2007004617

PATIENT
  Sex: Female

DRUGS (11)
  1. LUSTRAL [Suspect]
     Indication: DEPRESSION
     Route: 048
     Dates: start: 20010101, end: 20061202
  2. CLOPIDOGREL [Concomitant]
     Indication: ANTIPLATELET THERAPY
     Dosage: TEXT:75MG-FREQ:DAILY
     Route: 048
  3. NICORANDIL [Concomitant]
     Route: 048
  4. ORLISTAT [Concomitant]
     Indication: OBESITY
     Route: 048
  5. RAMIPRIL [Concomitant]
     Route: 048
  6. ATENOLOL [Concomitant]
     Route: 048
  7. MIRTAZAPINE [Concomitant]
     Route: 048
  8. ZOPICLONE [Concomitant]
     Indication: INSOMNIA
     Dosage: TEXT:1 TO 2 TABS 3.75MG-FREQ:NIGHTLY
     Route: 048
  9. FLUCLOXACILLIN [Concomitant]
     Route: 048
  10. LEVOTHYROXINE SODIUM [Concomitant]
     Indication: HYPOTHYROIDISM
     Dosage: FREQ:DAILY
     Route: 048
  11. DEPAKOTE [Concomitant]
     Indication: BIPOLAR DISORDER
     Route: 048

REACTIONS (10)
  - ANGINA PECTORIS [None]
  - ANGIOPLASTY [None]
  - BIPOLAR DISORDER [None]
  - CARDIOVASCULAR DISORDER [None]
  - CHEST PAIN [None]
  - ELECTROCARDIOGRAM T WAVE AMPLITUDE INCREASED [None]
  - ELECTROCARDIOGRAM T WAVE PEAKED [None]
  - HYPERHIDROSIS [None]
  - MYOCARDIAL ISCHAEMIA [None]
  - NAUSEA [None]
